FAERS Safety Report 16521941 (Version 3)
Quarter: 2019Q3

REPORT INFORMATION
  Report Type: Spontaneous
  Country: US (occurrence: US)
  Receive Date: 20190703
  Receipt Date: 20190910
  Transmission Date: 20191004
  Serious: No
  Sender: FDA-Public Use
  Company Number: PHEH2019US027525

PATIENT
  Sex: Female

DRUGS (1)
  1. AFINITOR [Suspect]
     Active Substance: EVEROLIMUS
     Indication: BREAST CANCER
     Dosage: 10 MG, QD
     Route: 048

REACTIONS (7)
  - Haemorrhoids [Unknown]
  - Diarrhoea [Unknown]
  - Skin irritation [Unknown]
  - Skin discolouration [Unknown]
  - Rash [Unknown]
  - Liver disorder [Unknown]
  - Vulvovaginal discomfort [Unknown]
